FAERS Safety Report 7345844-1 (Version None)
Quarter: 2011Q1

REPORT INFORMATION
  Report Type: 
  Country: None (occurrence: None)
  Receive Date: 20110311
  Receipt Date: 20110304
  Transmission Date: 20110831
  Serious: No
  Sender: FDA-Public Use
  Company Number: US-BIOGENIDEC-2010BI019092

PATIENT
  Age: 61 Year
  Sex: Female

DRUGS (1)
  1. TYSABRI [Suspect]
     Indication: MULTIPLE SCLEROSIS
     Route: 042
     Dates: start: 20100519

REACTIONS (11)
  - VITAMIN D DECREASED [None]
  - VOMITING [None]
  - JOINT SWELLING [None]
  - OEDEMA PERIPHERAL [None]
  - DIARRHOEA [None]
  - FATIGUE [None]
  - SINUS DISORDER [None]
  - PRURITUS [None]
  - PAIN [None]
  - BLOOD PRESSURE DECREASED [None]
  - VITAMIN D INCREASED [None]
